FAERS Safety Report 7368951-6 (Version None)
Quarter: 2011Q1

REPORT INFORMATION
  Report Type: 
  Country: None (occurrence: None)
  Receive Date: 20110323
  Receipt Date: 20110310
  Transmission Date: 20110831
  Serious: Yes (Other)
  Sender: FDA-Public Use
  Company Number: JP-JNJFOC-20110306333

PATIENT
  Age: 33 Year
  Sex: Female
  Weight: 60 kg

DRUGS (5)
  1. REMICADE [Suspect]
     Indication: CROHN'S DISEASE
     Route: 042
  2. REMICADE [Suspect]
     Dosage: 10TH DOSE
     Route: 042
  3. REMICADE [Suspect]
     Dosage: 12TH DOSE
     Route: 042
  4. IMURAN [Concomitant]
     Route: 048
  5. REMICADE [Suspect]
     Dosage: 11TH DOSE
     Route: 042

REACTIONS (3)
  - ANAPHYLACTIC REACTION [None]
  - OXYGEN SATURATION DECREASED [None]
  - INFUSION RELATED REACTION [None]
